FAERS Safety Report 6787873-2 (Version None)
Quarter: 2010Q2

REPORT INFORMATION
  Report Type: 
  Country: None (occurrence: None)
  Receive Date: 20100623
  Receipt Date: 20071113
  Transmission Date: 20101027
  Serious: No
  Sender: FDA-Public Use
  Company Number: US-PFIZER INC-2007093147

PATIENT
  Age: 34 Year
  Sex: Female
  Weight: 60.454 kg

DRUGS (1)
  1. PROVERA [Suspect]
     Indication: AMENORRHOEA
     Dates: start: 20071015

REACTIONS (3)
  - AMENORRHOEA [None]
  - BLOOD URINE PRESENT [None]
  - OLIGOMENORRHOEA [None]
